FAERS Safety Report 24169929 (Version 1)
Quarter: 2024Q3

REPORT INFORMATION
  Report Type: Report from Study
  Country: IT (occurrence: IT)
  Receive Date: 20240803
  Receipt Date: 20240803
  Transmission Date: 20241016
  Serious: Yes (Other)
  Sender: UCB
  Company Number: IT-UCBSA-2024037977

PATIENT
  Sex: Female

DRUGS (1)
  1. NEUPRO [Suspect]
     Active Substance: ROTIGOTINE
     Indication: Parkinson^s disease
     Dosage: 4 MILLIGRAM, ONCE DAILY (QD)
     Route: 062
     Dates: end: 20240716

REACTIONS (3)
  - Hallucination [Recovering/Resolving]
  - Seizure [Recovering/Resolving]
  - Muscle spasms [Recovering/Resolving]
